FAERS Safety Report 8904396 (Version 1)
Quarter: 2012Q4

REPORT INFORMATION
  Report Type: Report from Study
  Country: US (occurrence: US)
  Receive Date: 20121113
  Receipt Date: 20121113
  Transmission Date: 20130627
  Serious: Yes (Other)
  Sender: FDA-Public Use
  Company Number: US-ASTELLAS-2012US008033

PATIENT
  Age: 69 Year
  Sex: Female

DRUGS (1)
  1. ERLOTINIB TABLET [Suspect]
     Indication: BRONCHIAL CARCINOMA
     Dosage: 100 mg, UID/QD
     Route: 048
     Dates: start: 20120910

REACTIONS (4)
  - Incorrect dose administered [Unknown]
  - Compression fracture [Not Recovered/Not Resolved]
  - Thrombosis [Unknown]
  - Diarrhoea [Unknown]
